FAERS Safety Report 6162441-4 (Version None)
Quarter: 2009Q2

REPORT INFORMATION
  Report Type: 
  Country: None (occurrence: None)
  Receive Date: 20090421
  Receipt Date: 20090409
  Transmission Date: 20091009
  Serious: Yes (Hospitalization)
  Sender: FDA-Public Use
  Company Number: BE-PFIZER INC-2009198317

PATIENT

DRUGS (7)
  1. SUNITINIB MALATE [Suspect]
     Indication: PANCREATIC NEUROENDOCRINE TUMOUR
     Dosage: 12.5 MG, 3X/DAY
     Route: 048
     Dates: start: 20090311
  2. NOVONORM [Concomitant]
     Dosage: UNK
     Route: 048
  3. DURAGESIC-100 [Concomitant]
     Dosage: UNK
     Route: 062
  4. PANTOZOL [Concomitant]
     Dosage: UNK
     Route: 048
  5. LITICAN [Concomitant]
     Dosage: UNK
     Route: 048
  6. PILOCARPINE HYDROCHLORIDE [Concomitant]
     Dosage: UNK
     Route: 061
  7. SANDOSTATIN [Concomitant]
     Dosage: UNK
     Route: 030

REACTIONS (1)
  - METABOLIC ENCEPHALOPATHY [None]
